FAERS Safety Report 19376335 (Version 2)
Quarter: 2021Q3

REPORT INFORMATION
  Report Type: Report from Study
  Country: None (occurrence: US)
  Receive Date: 20210605
  Receipt Date: 20210717
  Transmission Date: 20211014
  Serious: Yes (Other)
  Sender: FDA-Public Use
  Company Number: US-ABBVIE-21K-163-3933351-00

PATIENT
  Sex: Female

DRUGS (2)
  1. RINVOQ [Suspect]
     Active Substance: UPADACITINIB
     Indication: PRODUCT USED FOR UNKNOWN INDICATION
     Route: 048
  2. HUMIRA [Suspect]
     Active Substance: ADALIMUMAB
     Indication: RHEUMATOID ARTHRITIS
     Dosage: CITRATE FREE
     Route: 058
     Dates: start: 2002, end: 2019

REACTIONS (6)
  - Intervertebral disc protrusion [Unknown]
  - Fall [Unknown]
  - Joint range of motion decreased [Unknown]
  - Lumbar vertebral fracture [Unknown]
  - Intervertebral disc degeneration [Unknown]
  - Drug ineffective [Unknown]
